FAERS Safety Report 21006518 (Version 1)
Quarter: 2022Q2

REPORT INFORMATION
  Report Type: Spontaneous
  Country: US (occurrence: US)
  Receive Date: 20220624
  Receipt Date: 20220624
  Transmission Date: 20220721
  Serious: No
  Sender: FDA-Public Use
  Company Number: US-TEVA-2022-US-2041658

PATIENT
  Age: 49 Year
  Sex: Male

DRUGS (1)
  1. MUPIROCIN [Suspect]
     Active Substance: MUPIROCIN
     Indication: Localised infection
     Dosage: 2 %
     Route: 065

REACTIONS (1)
  - Application site swelling [Unknown]
